FAERS Safety Report 4382724-8 (Version None)
Quarter: 2004Q2

REPORT INFORMATION
  Report Type: 
  Country: None (occurrence: None)
  Receive Date: 20040614
  Receipt Date: 20040331
  Transmission Date: 20050107
  Serious: Yes (Hospitalization)
  Sender: FDA-Public Use
  Company Number: S04-USA-01893-01

PATIENT
  Age: 48 Year
  Sex: Male

DRUGS (5)
  1. LEXAPRO [Suspect]
     Indication: DEPRESSION
     Dosage: 10 MG QD PO
     Route: 048
     Dates: start: 20040329, end: 20040330
  2. ZYVOX [Suspect]
     Indication: SINUSITIS
     Dosage: 600 MG QD
     Dates: start: 20040329, end: 20040330
  3. VANCOMYCIN [Concomitant]
  4. LORTAB [Concomitant]
  5. CATAPRES [Concomitant]

REACTIONS (1)
  - SEROTONIN SYNDROME [None]
